FAERS Safety Report 18280265 (Version 1)
Quarter: 2020Q3

REPORT INFORMATION
  Report Type: Spontaneous
  Country: JP (occurrence: JP)
  Receive Date: 20200917
  Receipt Date: 20200917
  Transmission Date: 20201103
  Serious: Yes (Hospitalization)
  Sender: FDA-Public Use
  Company Number: JP-NOVOPROD-748859

PATIENT
  Age: 4 Decade
  Sex: Female

DRUGS (1)
  1. OZEMPIC [Suspect]
     Active Substance: SEMAGLUTIDE
     Indication: TYPE 2 DIABETES MELLITUS
     Dosage: 0.25 MG, QW
     Route: 058

REACTIONS (5)
  - Nausea [Unknown]
  - Decreased appetite [Unknown]
  - Oedema [Unknown]
  - Injection site pain [Unknown]
  - Ketosis [Recovered/Resolved]
